FAERS Safety Report 6141094-5 (Version None)
Quarter: 2009Q2

REPORT INFORMATION
  Report Type: 
  Country: None (occurrence: None)
  Receive Date: 20090402
  Receipt Date: 20090325
  Transmission Date: 20091009
  Serious: Yes (Other)
  Sender: FDA-Public Use
  Company Number: PHHY2009US11007

PATIENT
  Sex: Male

DRUGS (7)
  1. ZOMETA [Suspect]
     Indication: BONE LESION
     Dosage: 4 MG, QMO
     Dates: start: 20071201, end: 20090101
  2. ZOMETA [Suspect]
     Indication: NON-HODGKIN'S LYMPHOMA
  3. PREDNISONE [Concomitant]
     Indication: NON-HODGKIN'S LYMPHOMA
     Dosage: 100 MG DAILY
     Dates: start: 20071201, end: 20080401
  4. CORTICOSTEROIDS [Concomitant]
  5. ACTONEL [Concomitant]
  6. CHOP [Concomitant]
     Indication: NON-HODGKIN'S LYMPHOMA
     Dosage: UNK
     Dates: start: 20071201, end: 20080701
  7. RITUXAN [Concomitant]
     Indication: NON-HODGKIN'S LYMPHOMA
     Dosage: 375 MG
     Dates: start: 20071201

REACTIONS (4)
  - JAW DISORDER [None]
  - OSTEOMYELITIS [None]
  - OSTEONECROSIS [None]
  - PAIN IN JAW [None]
